FAERS Safety Report 12701965 (Version 1)
Quarter: 2016Q3

REPORT INFORMATION
  Report Type: Spontaneous
  Country: US (occurrence: None)
  Receive Date: 20160830
  Receipt Date: 20160830
  Transmission Date: 20161109
  Serious: No
  Sender: FDA-Public Use
  Company Number: None

PATIENT
  Age: 65 Year
  Sex: Male

DRUGS (8)
  1. LISINOPRIL. [Concomitant]
     Active Substance: LISINOPRIL
  2. CIMZIA [Suspect]
     Active Substance: CERTOLIZUMAB PEGOL
     Indication: RHEUMATOID ARTHRITIS
     Route: 058
     Dates: start: 20141205
  3. XARELTO [Concomitant]
     Active Substance: RIVAROXABAN
  4. OMEPRAZOLE. [Concomitant]
     Active Substance: OMEPRAZOLE
  5. IBUPROFEN. [Concomitant]
     Active Substance: IBUPROFEN
  6. METOPROLOL. [Concomitant]
     Active Substance: METOPROLOL
  7. HYDROCO/APAP [Concomitant]
     Active Substance: ACETAMINOPHEN\HYDROCODONE
  8. CYANOCOBALAM [Concomitant]

REACTIONS (3)
  - Pain [None]
  - Drug dose omission [None]
  - Fatigue [None]

NARRATIVE: CASE EVENT DATE: 201608
